FAERS Safety Report 7148535-5 (Version None)
Quarter: 2010Q4

REPORT INFORMATION
  Report Type: 
  Country: None (occurrence: None)
  Receive Date: 20101209
  Receipt Date: 20101202
  Transmission Date: 20110411
  Serious: Yes (Other)
  Sender: FDA-Public Use
  Company Number: JP-BRISTOL-MYERS SQUIBB COMPANY-15420128

PATIENT

DRUGS (2)
  1. MAXIPIME [Suspect]
  2. EXCEGRAN [Suspect]

REACTIONS (1)
  - RENAL IMPAIRMENT [None]
